FAERS Safety Report 9971436 (Version 1)
Quarter: 2014Q1

REPORT INFORMATION
  Report Type: Spontaneous
  Country: US (occurrence: US)
  Receive Date: 20140306
  Receipt Date: 20140306
  Transmission Date: 20141002
  Serious: No
  Sender: FDA-Public Use
  Company Number: US-ABBVIE-13P-163-1150928-00

PATIENT
  Age: 68 Year
  Sex: Female
  Weight: 59.02 kg

DRUGS (6)
  1. HUMIRA [Suspect]
     Indication: RHEUMATOID ARTHRITIS
     Dates: start: 20130801, end: 201309
  2. ESTRADIOL/NORETHINDRONE [Concomitant]
     Indication: HORMONE REPLACEMENT THERAPY
  3. LOSARTAN [Concomitant]
     Indication: HYPERTENSION
  4. LEVOTHYROXINE [Concomitant]
     Indication: HYPOTHYROIDISM
  5. TURMERIC [Concomitant]
     Indication: RHEUMATOID ARTHRITIS
  6. KRILL OIL [Concomitant]
     Indication: BLOOD CHOLESTEROL INCREASED

REACTIONS (8)
  - Burning sensation [Recovered/Resolved]
  - Rhinitis [Recovered/Resolved]
  - Epistaxis [Recovered/Resolved]
  - Rhinorrhoea [Recovered/Resolved]
  - Dry skin [Recovered/Resolved]
  - Condition aggravated [Not Recovered/Not Resolved]
  - Nasal dryness [Not Recovered/Not Resolved]
  - Staphylococcal infection [Not Recovered/Not Resolved]
